FAERS Safety Report 21957444 (Version 2)
Quarter: 2023Q2

REPORT INFORMATION
  Report Type: Spontaneous
  Country: US (occurrence: US)
  Receive Date: 20230206
  Receipt Date: 20230503
  Transmission Date: 20230721
  Serious: No
  Sender: FDA-Public Use
  Company Number: US-GLAXOSMITHKLINE-USCH2023AMR004919

PATIENT
  Sex: Male

DRUGS (6)
  1. FLUTICASONE [Suspect]
     Active Substance: FLUTICASONE
     Indication: Sneezing
     Dosage: UNK
  2. FLUTICASONE [Suspect]
     Active Substance: FLUTICASONE
     Indication: Sinus congestion
  3. FLUTICASONE [Suspect]
     Active Substance: FLUTICASONE
     Indication: Rhinorrhoea
  4. FLUTICASONE [Suspect]
     Active Substance: FLUTICASONE
     Indication: Ear pruritus
  5. NUCALA [Suspect]
     Active Substance: MEPOLIZUMAB
     Indication: Asthma
     Dosage: UNK
  6. ZYRTEC [Suspect]
     Active Substance: CETIRIZINE HYDROCHLORIDE
     Indication: Product used for unknown indication
     Dosage: UNK

REACTIONS (9)
  - Sinus disorder [Unknown]
  - Condition aggravated [Unknown]
  - Sinus barotrauma [Unknown]
  - Headache [Unknown]
  - Pruritus [Unknown]
  - Insomnia [Unknown]
  - Body temperature increased [Unknown]
  - Ear pruritus [Unknown]
  - Product use in unapproved indication [Unknown]
